FAERS Safety Report 23695460 (Version 2)
Quarter: 2024Q2

REPORT INFORMATION
  Report Type: Spontaneous
  Country: IT (occurrence: IT)
  Receive Date: 20240402
  Receipt Date: 20240408
  Transmission Date: 20240716
  Serious: Yes (Hospitalization, Other)
  Sender: FDA-Public Use
  Company Number: None

PATIENT
  Age: 63 Year
  Sex: Male

DRUGS (1)
  1. TACROLIMUS [Suspect]
     Active Substance: TACROLIMUS
     Indication: Immunosuppressant drug therapy
     Dosage: 0.032 MILLIGRAM/KILOGRAM/DAY
     Route: 065

REACTIONS (8)
  - Dysmetria [Recovered/Resolved]
  - Dysarthria [Recovering/Resolving]
  - Aprosody [Recovering/Resolving]
  - Muscle spasticity [Recovering/Resolving]
  - Language disorder [Recovering/Resolving]
  - Hyperreflexia [Recovering/Resolving]
  - Neurotoxicity [Recovered/Resolved]
  - Extensor plantar response [Recovered/Resolved]

NARRATIVE: CASE EVENT DATE: 20230101
